FAERS Safety Report 25839378 (Version 1)
Quarter: 2025Q3

REPORT INFORMATION
  Report Type: Spontaneous
  Country: US (occurrence: US)
  Receive Date: 20250924
  Receipt Date: 20250924
  Transmission Date: 20251021
  Serious: Yes (Other)
  Sender: COOPERSURGICAL
  Company Number: US-COOPERSURGICAL, INC.-2025CPS006832

PATIENT
  Age: 39 Year
  Sex: Female
  Weight: 95.238 kg

DRUGS (1)
  1. PARAGARD T 380A [Suspect]
     Active Substance: COPPER
     Indication: Contraception
     Route: 015
     Dates: start: 20141009

REACTIONS (16)
  - Surgery [Recovered/Resolved]
  - Reproductive complication associated with device [Unknown]
  - Smear cervix abnormal [Unknown]
  - Device breakage [Not Recovered/Not Resolved]
  - Foreign body in urogenital tract [Not Recovered/Not Resolved]
  - Complication of device removal [Not Recovered/Not Resolved]
  - Embedded device [Not Recovered/Not Resolved]
  - Procedural pain [Recovered/Resolved]
  - Anxiety [Unknown]
  - Depression [Unknown]
  - Pelvic floor dysfunction [Recovered/Resolved]
  - Abdominal pain [Unknown]
  - Abdominal tenderness [Unknown]
  - Dysmenorrhoea [Unknown]
  - Intermenstrual bleeding [Recovered/Resolved]
  - Heavy menstrual bleeding [Unknown]

NARRATIVE: CASE EVENT DATE: 20141009
